FAERS Safety Report 5596214-8 (Version None)
Quarter: 2008Q1

REPORT INFORMATION
  Report Type: 
  Country: None (occurrence: None)
  Receive Date: 20080118
  Receipt Date: 20080111
  Transmission Date: 20080703
  Serious: Yes (Death)
  Sender: FDA-Public Use
  Company Number: AR-ABBOTT-06P-007-0341036-00

PATIENT
  Sex: Male

DRUGS (5)
  1. RITONAVIR SOFT GELATIN CAPSULES [Suspect]
     Indication: HIV INFECTION
     Route: 048
     Dates: start: 20050118, end: 20060812
  2. TMC114 (DARUNAVIR) [Concomitant]
     Indication: HIV INFECTION
     Route: 048
     Dates: start: 20050118, end: 20060812
  3. ENFUVIRTIDE (ANTIVIRALS FOR SYSTEMIC USE) [Concomitant]
     Indication: HIV INFECTION
     Route: 058
     Dates: start: 20050201
  4. TENOFOVIR [Concomitant]
     Indication: HIV INFECTION
     Route: 048
     Dates: start: 20050201
  5. OXCARBAZEPINE [Concomitant]
     Indication: CONVULSION PROPHYLAXIS
     Route: 048

REACTIONS (1)
  - SUDDEN DEATH [None]
